FAERS Safety Report 4819097-X (Version None)
Quarter: 2005Q4

REPORT INFORMATION
  Report Type: 
  Country: None (occurrence: None)
  Receive Date: 20051101
  Receipt Date: 20051101
  Transmission Date: 20060501
  Serious: Yes (Other)
  Sender: FDA-Public Use
  Company Number: None

PATIENT
  Age: 54 Year
  Sex: Male
  Weight: 93.4 kg

DRUGS (1)
  1. EZETIMIBE [Suspect]
     Indication: BLOOD CHOLESTEROL INCREASED

REACTIONS (1)
  - DRUG HYPERSENSITIVITY [None]
